FAERS Safety Report 7734560-X (Version None)
Quarter: 2011Q3

REPORT INFORMATION
  Report Type: 
  Country: None (occurrence: None)
  Receive Date: 20110907
  Receipt Date: 20110901
  Transmission Date: 20111222
  Serious: Yes (Other)
  Sender: FDA-Public Use
  Company Number: JP-GLAXOSMITHKLINE-B0744512A

PATIENT
  Age: 65 Year
  Sex: Male

DRUGS (3)
  1. MEPTIN AIR [Concomitant]
     Route: 055
     Dates: start: 20110531
  2. LOXONIN [Suspect]
     Route: 048
  3. FLUTICASONE PROPIONATE/SALMETEROL [Suspect]
     Indication: PRODUCT USED FOR UNKNOWN INDICATION
     Dosage: 2IUAX PER DAY
     Route: 055
     Dates: start: 20110531

REACTIONS (1)
  - GASTRIC ULCER [None]
